FAERS Safety Report 22332679 (Version 1)
Quarter: 2023Q2

REPORT INFORMATION
  Report Type: Spontaneous
  Country: US (occurrence: US)
  Receive Date: 20230517
  Receipt Date: 20230517
  Transmission Date: 20230722
  Serious: Yes (Hospitalization)
  Sender: FDA-Public Use
  Company Number: US-MYLANLABS-2023M1050425

PATIENT
  Age: 77 Year
  Sex: Female

DRUGS (1)
  1. NAPROXEN [Suspect]
     Active Substance: NAPROXEN
     Indication: Back pain
     Dosage: 500 MILLIGRAM 1-2/DAY)
     Route: 065

REACTIONS (2)
  - Glomerulonephritis minimal lesion [Recovered/Resolved]
  - Tubulointerstitial nephritis [Recovered/Resolved]
